FAERS Safety Report 25385336 (Version 1)
Quarter: 2025Q2

REPORT INFORMATION
  Report Type: Spontaneous
  Country: ES (occurrence: ES)
  Receive Date: 20250602
  Receipt Date: 20250602
  Transmission Date: 20250716
  Serious: Yes (Other)
  Sender: CHEPLAPHARM
  Company Number: ES-CHEPLA-2025006714

PATIENT
  Age: 64 Year
  Sex: Male

DRUGS (16)
  1. VALGANCICLOVIR [Suspect]
     Active Substance: VALGANCICLOVIR
     Indication: Antiviral prophylaxis
     Dates: start: 202304
  2. VALGANCICLOVIR [Suspect]
     Active Substance: VALGANCICLOVIR
     Indication: Antiviral prophylaxis
     Dates: start: 202404
  3. GANCICLOVIR [Suspect]
     Active Substance: GANCICLOVIR
     Indication: Antiviral prophylaxis
     Dates: start: 202307
  4. GANCICLOVIR [Suspect]
     Active Substance: GANCICLOVIR
     Indication: Antiviral prophylaxis
     Dates: start: 202308
  5. BASILIXIMAB [Suspect]
     Active Substance: BASILIXIMAB
     Indication: Heart transplant
  6. TACROLIMUS [Suspect]
     Active Substance: TACROLIMUS
     Indication: Heart transplant
  7. MYCOPHENOLATE MOFETIL [Suspect]
     Active Substance: MYCOPHENOLATE MOFETIL
     Indication: Heart transplant
  8. FOSCARNET [Suspect]
     Active Substance: FOSCARNET
     Indication: Antiviral prophylaxis
     Dates: start: 202307
  9. FOSCARNET [Suspect]
     Active Substance: FOSCARNET
     Indication: Renal impairment
     Dates: start: 202307
  10. FOSCARNET [Suspect]
     Active Substance: FOSCARNET
     Indication: Antiviral prophylaxis
     Dates: start: 202404
  11. FOSCARNET [Suspect]
     Active Substance: FOSCARNET
     Indication: Renal impairment
     Dates: start: 202404
  12. MARIBAVIR [Suspect]
     Active Substance: MARIBAVIR
     Indication: Antiviral prophylaxis
     Dates: start: 202307
  13. MARIBAVIR [Suspect]
     Active Substance: MARIBAVIR
     Indication: Antiviral prophylaxis
     Dates: start: 202308
  14. MARIBAVIR [Suspect]
     Active Substance: MARIBAVIR
     Indication: Antiviral prophylaxis
     Dates: start: 202403
  15. EVEROLIMUS [Suspect]
     Active Substance: EVEROLIMUS
     Indication: Antiviral prophylaxis
     Dates: start: 202404
  16. EVEROLIMUS [Suspect]
     Active Substance: EVEROLIMUS
     Indication: Pleural effusion
     Dates: start: 202404

REACTIONS (7)
  - Thrombotic microangiopathy [Recovering/Resolving]
  - Pancytopenia [Unknown]
  - Condition aggravated [Recovering/Resolving]
  - Pneumonia [Unknown]
  - Cytomegalovirus infection [Not Recovered/Not Resolved]
  - Therapeutic product effect incomplete [Unknown]
  - Drug resistance mutation [Unknown]

NARRATIVE: CASE EVENT DATE: 20230701
